FAERS Safety Report 4784492-4 (Version None)
Quarter: 2005Q3

REPORT INFORMATION
  Report Type: 
  Country: None (occurrence: None)
  Receive Date: 20050930
  Receipt Date: 20050922
  Transmission Date: 20060218
  Serious: Yes (Other)
  Sender: FDA-Public Use
  Company Number: CA-GLAXOSMITHKLINE-A0575670A

PATIENT
  Age: 62 Year
  Sex: Male
  Weight: 86.4 kg

DRUGS (5)
  1. ZOVIRAX [Suspect]
     Dosage: 1G THREE TIMES PER DAY
     Route: 042
     Dates: start: 20050901, end: 20050901
  2. METOPROLOL [Concomitant]
     Indication: PROPHYLAXIS
     Dosage: 50MG TWICE PER DAY
  3. SIMVASTATIN [Concomitant]
     Indication: PROPHYLAXIS
     Dosage: 20MG PER DAY
  4. ASPIRIN [Concomitant]
     Indication: PROPHYLAXIS
     Dosage: 81MG PER DAY
  5. COLACE [Concomitant]

REACTIONS (9)
  - ABNORMAL DREAMS [None]
  - CONFUSIONAL STATE [None]
  - DYSARTHRIA [None]
  - DYSPHAGIA [None]
  - HALLUCINATION [None]
  - NEUROLOGICAL SYMPTOM [None]
  - SPEECH DISORDER [None]
  - TREMOR [None]
  - WEIGHT DECREASED [None]
